FAERS Safety Report 26201290 (Version 2)
Quarter: 2025Q4

REPORT INFORMATION
  Report Type: Spontaneous
  Country: EU (occurrence: EU)
  Receive Date: 20251226
  Receipt Date: 20251230
  Transmission Date: 20260118
  Serious: Yes (Other)
  Sender: ROCHE
  Company Number: EU-ROCHE-10000452386

PATIENT
  Age: 89 Year
  Sex: Male

DRUGS (3)
  1. FARICIMAB [Suspect]
     Active Substance: FARICIMAB
     Indication: Retinal neovascularisation
     Dosage: FREQUENCY: LOADING PHASE 4W PER 3 IVT
     Dates: start: 20250625
  2. FARICIMAB [Suspect]
     Active Substance: FARICIMAB
     Dosage: FREQUENCY: LOADING PHASE 4W PER 3 IVT
     Dates: start: 20250721
  3. FARICIMAB [Suspect]
     Active Substance: FARICIMAB
     Dosage: FREQUENCY: LOADING PHASE 4W PER 3 IVT
     Dates: start: 20250922

REACTIONS (1)
  - Retinal pigment epithelial tear [Unknown]
